FAERS Safety Report 10547736 (Version 1)
Quarter: 2014Q4

REPORT INFORMATION
  Report Type: Spontaneous
  Country: US (occurrence: None)
  Receive Date: 20141024
  Receipt Date: 20141024
  Transmission Date: 20150529
  Serious: Yes (Disabling)
  Sender: FDA-Public Use
  Company Number: None

PATIENT
  Age: 51 Year
  Sex: Male
  Weight: 83.92 kg

DRUGS (1)
  1. CIPRO [Suspect]
     Active Substance: CIPROFLOXACIN HYDROCHLORIDE
     Indication: INFECTION

REACTIONS (6)
  - Wheelchair user [None]
  - Movement disorder [None]
  - Peripheral vascular disorder [None]
  - Suicidal ideation [None]
  - Paraesthesia [None]
  - Tendon discomfort [None]

NARRATIVE: CASE EVENT DATE: 20120820
